FAERS Safety Report 23683983 (Version 2)
Quarter: 2024Q2

REPORT INFORMATION
  Report Type: Spontaneous
  Country: CN (occurrence: None)
  Receive Date: 20240328
  Receipt Date: 20240404
  Transmission Date: 20240715
  Serious: Yes (Death, Other)
  Sender: FDA-Public Use
  Company Number: 2024A073214

PATIENT
  Age: 57 Year
  Sex: Female

DRUGS (4)
  1. OSIMERTINIB [Suspect]
     Active Substance: OSIMERTINIB
     Indication: Non-small cell lung cancer stage IV
     Route: 048
     Dates: start: 202008
  2. PACLITAXEL AND PLATINUM CHEMOTHERAPY [Concomitant]
  3. PACLITAXEL AND PLATINUM CHEMOTHERAPY [Concomitant]
  4. ANLOTINIB/NIVOLUMAB [Concomitant]
     Dates: start: 202106, end: 202108

REACTIONS (6)
  - Malignant neoplasm progression [Fatal]
  - Drug resistance [Fatal]
  - Gene mutation [Fatal]
  - Metastases to liver [Fatal]
  - Metastases to bone [Fatal]
  - Metastases to lung [Fatal]

NARRATIVE: CASE EVENT DATE: 20210401
